FAERS Safety Report 11412706 (Version 2)
Quarter: 2015Q3

REPORT INFORMATION
  Report Type: Spontaneous
  Country: US (occurrence: US)
  Receive Date: 20150821
  Receipt Date: 20150903
  Transmission Date: 20151125
  Serious: No
  Sender: FDA-Public Use
  Company Number: US-ELI_LILLY_AND_COMPANY-US201205003720

PATIENT
  Sex: Female

DRUGS (5)
  1. HUMALOG MIX75/25 [Suspect]
     Active Substance: INSULIN LISPRO
     Dosage: 52 U, EACH EVENING
     Dates: start: 20120426
  2. HUMALOG MIX75/25 [Suspect]
     Active Substance: INSULIN LISPRO
     Indication: DIABETES MELLITUS
     Dosage: 64 U, EACH MORNING
     Dates: start: 20120426
  3. HUMULIN N [Suspect]
     Active Substance: INSULIN HUMAN
     Dosage: UNK, UNKNOWN
     Dates: end: 20120426
  4. NOVOLOG [Concomitant]
     Active Substance: INSULIN ASPART
  5. HUMALOG [Suspect]
     Active Substance: INSULIN LISPRO
     Dosage: UNK, UNKNOWN
     Dates: end: 20120426

REACTIONS (9)
  - Renal disorder [Unknown]
  - Diarrhoea [Unknown]
  - Abdominal distension [Unknown]
  - Swelling [Unknown]
  - Pain [Unknown]
  - Abdominal pain upper [Unknown]
  - Nausea [Unknown]
  - Muscle spasms [Unknown]
  - Cystitis [Unknown]
